FAERS Safety Report 9436599 (Version 1)
Quarter: 2013Q3

REPORT INFORMATION
  Report Type: Spontaneous
  Country: US (occurrence: US)
  Receive Date: 20130802
  Receipt Date: 20130802
  Transmission Date: 20140515
  Serious: No
  Sender: FDA-Public Use
  Company Number: US-B.I. PHARMACEUTICALS,INC./RIDGEFIELD-2013-BI-22900BP

PATIENT
  Age: 67 Year
  Sex: Female

DRUGS (4)
  1. SPIRIVA [Suspect]
     Indication: CHRONIC OBSTRUCTIVE PULMONARY DISEASE
     Dosage: 18 MCG
     Route: 055
     Dates: start: 20130718
  2. SYMBICORT [Concomitant]
     Indication: CHRONIC OBSTRUCTIVE PULMONARY DISEASE
     Dosage: 2 PUF
     Route: 055
     Dates: start: 201307
  3. INDERAL [Concomitant]
     Indication: HYPERTENSION
     Dosage: 80 MG
     Route: 048
     Dates: start: 2011
  4. POTASSIUM [Concomitant]
     Indication: HYPOKALAEMIA
     Route: 048
     Dates: start: 2011

REACTIONS (3)
  - Swelling [Not Recovered/Not Resolved]
  - Chest discomfort [Not Recovered/Not Resolved]
  - Cough [Not Recovered/Not Resolved]
